FAERS Safety Report 5094837-6 (Version None)
Quarter: 2006Q3

REPORT INFORMATION
  Report Type: 
  Country: None (occurrence: None)
  Receive Date: 20060830
  Receipt Date: 20060830
  Transmission Date: 20061208
  Serious: Yes (Other)
  Sender: FDA-Public Use
  Company Number: None

PATIENT
  Age: 23 Year
  Sex: Female
  Weight: 49.8957 kg

DRUGS (2)
  1. EFFEXOR XR [Suspect]
     Indication: DEPRESSION
     Dosage: 1 CAPSULE DAILY PO
     Route: 048
     Dates: start: 20060424, end: 20060825
  2. EFFEXOR XR [Suspect]
     Indication: FAMILIAL RISK FACTOR
     Dosage: 1 CAPSULE DAILY PO
     Route: 048
     Dates: start: 20060424, end: 20060825

REACTIONS (9)
  - DRUG DEPENDENCE [None]
  - DRUG EXPOSURE DURING PREGNANCY [None]
  - DRUG WITHDRAWAL SYNDROME [None]
  - FEELING HOT AND COLD [None]
  - HUNGER [None]
  - HYPERPHAGIA [None]
  - IMPAIRED WORK ABILITY [None]
  - MOOD ALTERED [None]
  - PREGNANCY [None]
